FAERS Safety Report 19148162 (Version 1)
Quarter: 2021Q2

REPORT INFORMATION
  Report Type: Spontaneous
  Country: AU (occurrence: AU)
  Receive Date: 20210417
  Receipt Date: 20210417
  Transmission Date: 20210717
  Serious: Yes (Hospitalization, Other)
  Sender: FDA-Public Use
  Company Number: AU-B.I. PHARMACEUTICALS,INC./RIDGEFIELD-2021-BI-096837

PATIENT
  Sex: Female

DRUGS (1)
  1. JARDIAMET [Suspect]
     Active Substance: EMPAGLIFLOZIN\METFORMIN HYDROCHLORIDE
     Indication: PRODUCT USED FOR UNKNOWN INDICATION
     Dosage: INTERRUPTED JARDIAMET BEFORE BARIATRIC SURGERY AND RECOMMENCED 5 DAYS AFTER SURGERY

REACTIONS (2)
  - Metabolic surgery [Unknown]
  - Diabetic ketoacidosis [Recovered/Resolved]
